FAERS Safety Report 7423357-6 (Version None)
Quarter: 2011Q2

REPORT INFORMATION
  Report Type: 
  Country: None (occurrence: None)
  Receive Date: 20110419
  Receipt Date: 20110405
  Transmission Date: 20111010
  Serious: Yes (Hospitalization, Other)
  Sender: FDA-Public Use
  Company Number: PHHY2010IT03019

PATIENT
  Sex: Male

DRUGS (23)
  1. MYFORTIC [Suspect]
     Indication: RENAL TRANSPLANT
     Dosage: 180 MG, UNK
  2. SANDIMMUNE [Suspect]
     Indication: RENAL TRANSPLANT
     Dosage: 50 MG, UNK
  3. PARIET [Concomitant]
  4. XATRAL [Concomitant]
     Dosage: 10 MG, UNK
  5. LOSARTAN POTASSIUM [Concomitant]
  6. S-OIV FOCETRIA [Suspect]
     Indication: IMMUNISATION
     Dosage: 1 DF
     Route: 030
     Dates: start: 20091127, end: 20091127
  7. S-OIV FOCETRIA [Suspect]
     Dosage: 1 DF
     Route: 030
     Dates: start: 20091218, end: 20091218
  8. DILATREND [Concomitant]
     Dosage: 6.25 MG, UNK
  9. ZYLORIC [Concomitant]
  10. ASPIRIN [Concomitant]
     Dosage: 100 MG, UNK
  11. TORVAST [Concomitant]
     Dosage: 40 MG, UNK
  12. ACETYLSALICYLIC ACID SRT [Concomitant]
  13. PLAVIX [Concomitant]
     Dosage: UNK
  14. SEACOR [Concomitant]
  15. MYCOPHENOLIC ACID [Concomitant]
  16. CLOPIDOGREL [Concomitant]
  17. RABEPRAZOLE SODIUM [Concomitant]
  18. ALLOPURINOL [Concomitant]
  19. ATORVASTATIN [Concomitant]
  20. OMEGA-3 TRIGLYCERIDES [Concomitant]
  21. CARVEDILOL [Concomitant]
  22. LORTAAN [Concomitant]
     Dosage: 50 MG, UNK
  23. ALFUZOSIN HCL [Concomitant]

REACTIONS (20)
  - CYTOMEGALOVIRUS INFECTION [None]
  - LUNG CONSOLIDATION [None]
  - PANCYTOPENIA [None]
  - PNEUMONIA [None]
  - BREATH SOUNDS ABNORMAL [None]
  - GYNAECOMASTIA [None]
  - PNEUMONITIS [None]
  - CHILLS [None]
  - HEPATOMEGALY [None]
  - DIVERTICULUM INTESTINAL [None]
  - SCAR [None]
  - ASTHENIA [None]
  - MYALGIA [None]
  - LYMPHADENOPATHY [None]
  - HYPOCAPNIA [None]
  - PYREXIA [None]
  - PALLOR [None]
  - NEPHROPATHY TOXIC [None]
  - HYPOXIA [None]
  - ARTHRALGIA [None]
